FAERS Safety Report 15674110 (Version 1)
Quarter: 2018Q4

REPORT INFORMATION
  Report Type: Spontaneous
  Country: US (occurrence: US)
  Receive Date: 20181129
  Receipt Date: 20181129
  Transmission Date: 20190205
  Serious: No
  Sender: FDA-Public Use
  Company Number: US-009507513-1811USA006423

PATIENT
  Age: 24 Year
  Sex: Female

DRUGS (1)
  1. EMEND [Suspect]
     Active Substance: APREPITANT
     Indication: CYCLIC VOMITING SYNDROME
     Dosage: STRENGTH: 125/80(UNIT UNKNOWN)
     Route: 048

REACTIONS (1)
  - Drug ineffective [Not Recovered/Not Resolved]
